FAERS Safety Report 5679549-X (Version None)
Quarter: 2008Q1

REPORT INFORMATION
  Report Type: 
  Country: None (occurrence: None)
  Receive Date: 20080324
  Receipt Date: 20080313
  Transmission Date: 20080703
  Serious: Yes (Hospitalization, Other)
  Sender: FDA-Public Use
  Company Number: 2008-00171

PATIENT
  Age: 55 Year
  Sex: Male
  Weight: 94.8 kg

DRUGS (10)
  1. VELCADE [Suspect]
     Indication: MULTIPLE MYELOMA
     Dosage: 1.30 MG, INTRAVENOUS
     Route: 042
     Dates: start: 20071015, end: 20080102
  2. NIASPAN [Concomitant]
  3. VYTORIN [Concomitant]
  4. COREG [Concomitant]
  5. NEXIUM [Concomitant]
  6. ALLOPURINOL [Concomitant]
  7. REGLAN [Concomitant]
  8. MULTIVITAMINS (ERGOCALCIFEROL, PANTHENOL, NICOTINAMIDE, RIBOFLAVIN, TH [Concomitant]
  9. ZOLOFT [Concomitant]
  10. LOPRESSOR [Concomitant]

REACTIONS (9)
  - BLOOD PRESSURE INCREASED [None]
  - CONVULSION [None]
  - ENCEPHALITIS VIRAL [None]
  - GASTROENTERITIS [None]
  - LOSS OF CONSCIOUSNESS [None]
  - POSTICTAL STATE [None]
  - SOMNOLENCE [None]
  - TONGUE INJURY [None]
  - URINARY INCONTINENCE [None]
